FAERS Safety Report 13322220 (Version 1)
Quarter: 2017Q1

REPORT INFORMATION
  Report Type: Spontaneous
  Country: CA (occurrence: CA)
  Receive Date: 20170310
  Receipt Date: 20170310
  Transmission Date: 20170428
  Serious: Yes (Other)
  Sender: FDA-Public Use
  Company Number: CA-ASTRAZENECA-2017SE24352

PATIENT
  Sex: Female

DRUGS (2)
  1. SYMBICORT [Suspect]
     Active Substance: BUDESONIDE\FORMOTEROL FUMARATE DIHYDRATE
     Indication: ASTHMA
     Route: 055
     Dates: end: 20170228
  2. AVAMYS [Concomitant]
     Active Substance: FLUTICASONE FUROATE

REACTIONS (36)
  - Upper limb fracture [Unknown]
  - Walking aid user [Unknown]
  - Rash [Unknown]
  - Mood altered [Unknown]
  - Muscular weakness [Unknown]
  - Nervous system disorder [Unknown]
  - Depression [Unknown]
  - Social avoidant behaviour [Unknown]
  - Cough [Unknown]
  - Intraductal papillary-mucinous carcinoma of pancreas [Unknown]
  - Hyperhidrosis [Unknown]
  - Pruritus [Unknown]
  - Fatigue [Unknown]
  - Dyspnoea [Unknown]
  - Gastrointestinal pain [Unknown]
  - Nervousness [Unknown]
  - Muscle spasms [Unknown]
  - Cerebrovascular accident [Unknown]
  - Pain in extremity [Unknown]
  - Anal cancer [Unknown]
  - Dysphagia [Unknown]
  - Pneumonia [Unknown]
  - Insomnia [Unknown]
  - Agitation [Unknown]
  - Dizziness [Unknown]
  - Cataract [Unknown]
  - Gait disturbance [Unknown]
  - Finger deformity [Unknown]
  - Pyrexia [Unknown]
  - Weight increased [Unknown]
  - Rhinorrhoea [Unknown]
  - Abnormal behaviour [Unknown]
  - Suicidal ideation [Unknown]
  - Neuroma [Unknown]
  - Personality change [Unknown]
  - Oropharyngeal pain [Unknown]

NARRATIVE: CASE EVENT DATE: 2015
